FAERS Safety Report 5040623-2 (Version None)
Quarter: 2006Q2

REPORT INFORMATION
  Report Type: 
  Country: None (occurrence: None)
  Receive Date: 20060627
  Receipt Date: 20060627
  Transmission Date: 20061013
  Serious: Yes (Death)
  Sender: FDA-Public Use
  Company Number: None

PATIENT
  Age: 33 Year
  Sex: Male
  Weight: 127.0072 kg

DRUGS (1)
  1. OXYCONTIN [Suspect]

REACTIONS (2)
  - DRUG ABUSER [None]
  - OVERDOSE [None]
